FAERS Safety Report 24012504 (Version 1)
Quarter: 2024Q2

REPORT INFORMATION
  Report Type: Spontaneous
  Country: US (occurrence: US)
  Receive Date: 20240626
  Receipt Date: 20240626
  Transmission Date: 20240716
  Serious: Yes (Other)
  Sender: FDA-Public Use
  Company Number: US-CELGENE-USA-20210505704

PATIENT

DRUGS (2)
  1. AZACITIDINE [Suspect]
     Active Substance: AZACITIDINE
     Indication: Acute lymphocytic leukaemia
     Dosage: 2.5 MG/KG/DOSE INTRAVENOUSLY OVER 10-40 MINUTES DAILY FOR 5 CONSECUTIVE DAYS
     Route: 042
     Dates: start: 201703, end: 201912
  2. AZACITIDINE [Suspect]
     Active Substance: AZACITIDINE
     Indication: B-cell type acute leukaemia

REACTIONS (2)
  - Neutropenia [Unknown]
  - Off label use [Unknown]
